FAERS Safety Report 8317160-2 (Version None)
Quarter: 2012Q2

REPORT INFORMATION
  Report Type: 
  Country: None (occurrence: None)
  Receive Date: 20120427
  Receipt Date: 20120413
  Transmission Date: 20120825
  Serious: Yes (Death)
  Sender: FDA-Public Use
  Company Number: DE-UCBSA-055659

PATIENT
  Age: 84 Year
  Sex: Female

DRUGS (4)
  1. LEVETIRACETAM [Concomitant]
     Indication: STATUS EPILEPTICUS
     Dosage: 2000 MG
  2. LACOSAMIDE [Suspect]
     Indication: STATUS EPILEPTICUS
     Dosage: 50 MG OR 100 MG OR 50 MG TWICE A DAY
     Route: 042
  3. VALPROATE SODIUM [Concomitant]
     Indication: STATUS EPILEPTICUS
     Dosage: 2400 MG
  4. LACOSAMIDE [Suspect]
     Dosage: 50 MG OR 100 MG OR 50 MG TWICE A DAY
     Route: 042

REACTIONS (2)
  - STATUS EPILEPTICUS [None]
  - PNEUMONIA [None]
